FAERS Safety Report 11101091 (Version 1)
Quarter: 2015Q2

REPORT INFORMATION
  Report Type: Spontaneous
  Country: CA (occurrence: CA)
  Receive Date: 20150508
  Receipt Date: 20150508
  Transmission Date: 20150821
  Serious: Yes (Other)
  Sender: FDA-Public Use
  Company Number: CA-ASTRAZENECA-2015SE41611

PATIENT
  Age: 63 Year
  Sex: Female

DRUGS (23)
  1. ALTACE [Concomitant]
     Active Substance: RAMIPRIL
  2. APO-HYDRO [Concomitant]
     Active Substance: HYDROCHLOROTHIAZIDE
  3. LYRICA [Suspect]
     Active Substance: PREGABALIN
     Route: 065
     Dates: end: 2013
  4. ELTROXIN [Concomitant]
     Active Substance: LEVOTHYROXINE
  5. SEMITOL [Concomitant]
  6. VITAMIN D [Concomitant]
     Active Substance: CHOLECALCIFEROL
  7. RITUXAN [Suspect]
     Active Substance: RITUXIMAB
     Indication: SJOGREN^S SYNDROME
     Route: 065
     Dates: start: 20070525
  8. JANUVIA [Concomitant]
     Active Substance: SITAGLIPTIN PHOSPHATE
  9. DOMPERIDONE [Suspect]
     Active Substance: DOMPERIDONE
     Route: 065
     Dates: end: 2013
  10. DIPHENHYDRAMINE HCL [Concomitant]
     Active Substance: DIPHENHYDRAMINE HYDROCHLORIDE
  11. PREDNISONE. [Concomitant]
     Active Substance: PREDNISONE
  12. ATACAND [Concomitant]
     Active Substance: CANDESARTAN CILEXETIL
  13. NORVASC [Concomitant]
     Active Substance: AMLODIPINE BESYLATE
  14. NEXIUM [Suspect]
     Active Substance: ESOMEPRAZOLE MAGNESIUM
     Route: 065
     Dates: end: 2013
  15. LANTUS [Suspect]
     Active Substance: INSULIN GLARGINE
     Route: 065
     Dates: end: 2013
  16. METHYLPREDNISOLONE. [Concomitant]
     Active Substance: METHYLPREDNISOLONE
  17. LISINOPRIL. [Concomitant]
     Active Substance: LISINOPRIL
     Dosage: GENERIC
  18. CRESTOR [Concomitant]
     Active Substance: ROSUVASTATIN CALCIUM
  19. DIAMICRON [Suspect]
     Active Substance: GLICLAZIDE
     Indication: DIABETES MELLITUS
     Route: 065
     Dates: end: 2013
  20. ACETAMINOPHEN. [Concomitant]
     Active Substance: ACETAMINOPHEN
  21. SYNTHROID [Concomitant]
     Active Substance: LEVOTHYROXINE SODIUM
  22. EZETROL [Concomitant]
     Active Substance: EZETIMIBE
  23. DEPO-MEDROL [Concomitant]
     Active Substance: METHYLPREDNISOLONE ACETATE

REACTIONS (3)
  - Adverse reaction [Unknown]
  - Coronary artery occlusion [Unknown]
  - Arthritis [Unknown]
